FAERS Safety Report 6894992-9 (Version None)
Quarter: 2010Q3

REPORT INFORMATION
  Report Type: 
  Country: None (occurrence: None)
  Receive Date: 20100802
  Receipt Date: 20100723
  Transmission Date: 20110219
  Serious: Yes (Other)
  Sender: FDA-Public Use
  Company Number: JP-ROCHE-717926

PATIENT
  Sex: Female

DRUGS (13)
  1. TOCILIZUMAB [Suspect]
     Indication: RHEUMATOID ARTHRITIS
     Route: 042
     Dates: start: 20090515, end: 20090515
  2. TOCILIZUMAB [Suspect]
     Route: 042
     Dates: start: 20090615, end: 20090615
  3. TOCILIZUMAB [Suspect]
     Route: 042
     Dates: start: 20090714, end: 20090714
  4. TOCILIZUMAB [Suspect]
     Route: 042
     Dates: start: 20090811, end: 20090811
  5. METHOTREXATE [Concomitant]
     Route: 048
  6. PROGRAF [Concomitant]
     Route: 048
     Dates: end: 20090515
  7. AZULFIDINE [Concomitant]
     Route: 048
     Dates: start: 20011017, end: 20090515
  8. PREDONINE [Concomitant]
     Route: 048
  9. SALAGEN [Concomitant]
     Dosage: DRUG NAME: SALAGEN(PILOCARPINE HYDROCHLORIDE)
     Route: 048
  10. TAKEPRON [Concomitant]
     Route: 048
  11. ROCALTROL [Concomitant]
     Route: 048
  12. CELCOX [Concomitant]
     Route: 048
  13. MUCOSTA [Concomitant]
     Route: 048

REACTIONS (1)
  - HISTIOCYTOSIS HAEMATOPHAGIC [None]
